FAERS Safety Report 10208038 (Version 1)
Quarter: 2014Q2

REPORT INFORMATION
  Report Type: Spontaneous
  Country: US (occurrence: None)
  Receive Date: 20140528
  Receipt Date: 20140528
  Transmission Date: 20141212
  Serious: Yes (Disabling)
  Sender: FDA-Public Use
  Company Number: None

PATIENT
  Age: 58 Year
  Sex: Female
  Weight: 88.45 kg

DRUGS (9)
  1. ABILIFY [Suspect]
     Indication: DEPRESSION
     Dosage: 15 MG, 1X A DAY, EVERYDAY, BY MOUTH
     Route: 048
     Dates: start: 20120106, end: 20130523
  2. LORSATON [Concomitant]
  3. TRIAMT [Concomitant]
  4. POTASSIUM [Concomitant]
  5. CELEXA [Concomitant]
  6. MELOXICAM [Concomitant]
  7. MULTIVITAMIN [Concomitant]
  8. TUMS [Concomitant]
  9. TYLENOL [Concomitant]

REACTIONS (18)
  - Tremor [None]
  - Headache [None]
  - Dyskinesia [None]
  - Balance disorder [None]
  - Musculoskeletal stiffness [None]
  - Bruxism [None]
  - Nervousness [None]
  - Alopecia [None]
  - Acne [None]
  - Nausea [None]
  - Diarrhoea [None]
  - Dyspepsia [None]
  - Sleep disorder [None]
  - Arthralgia [None]
  - Pain [None]
  - Memory impairment [None]
  - Mood altered [None]
  - Aggression [None]
